FAERS Safety Report 5324112-3 (Version None)
Quarter: 2007Q2

REPORT INFORMATION
  Report Type: 
  Country: None (occurrence: None)
  Receive Date: 20070514
  Receipt Date: 20060606
  Transmission Date: 20071010
  Serious: No
  Sender: FDA-Public Use
  Company Number: A0608079A

PATIENT
  Age: 51 Year
  Sex: Female

DRUGS (5)
  1. RELAFEN [Suspect]
     Indication: BACK PAIN
     Dosage: 500MG VARIABLE DOSE
     Route: 048
     Dates: start: 20060417
  2. LEXAPRO [Concomitant]
  3. DARVOCET [Concomitant]
  4. LORTAB [Concomitant]
  5. ZOCOR [Concomitant]

REACTIONS (1)
  - SPIDER VEIN [None]
